FAERS Safety Report 10157203 (Version 1)
Quarter: 2014Q2

REPORT INFORMATION
  Report Type: Spontaneous
  Country: US (occurrence: US)
  Receive Date: 20140507
  Receipt Date: 20140507
  Transmission Date: 20141212
  Serious: No
  Sender: FDA-Public Use
  Company Number: US-009507513-1404USA006645

PATIENT
  Age: 22 Year
  Sex: Female
  Weight: 54.42 kg

DRUGS (1)
  1. NEXPLANON [Suspect]
     Indication: CONTRACEPTION
     Dosage: 1 ROD FOR 3 YEARS, LEFT ARM
     Route: 059
     Dates: start: 20130211

REACTIONS (3)
  - Menorrhagia [Recovered/Resolved]
  - Menorrhagia [Unknown]
  - Amenorrhoea [Recovered/Resolved]
